FAERS Safety Report 20174250 (Version 1)
Quarter: 2021Q4

REPORT INFORMATION
  Report Type: Other
  Country: ES (occurrence: None)
  Receive Date: 20211213
  Receipt Date: 20211213
  Transmission Date: 20220303
  Serious: Yes (Other)
  Sender: FDA-Public Use
  Company Number: ES-ROCHE-2974427

PATIENT

DRUGS (7)
  1. RITUXIMAB [Suspect]
     Active Substance: RITUXIMAB
     Indication: Prophylaxis against graft versus host disease
     Route: 065
  2. OBINUTUZUMAB [Suspect]
     Active Substance: OBINUTUZUMAB
     Indication: Lymphoproliferative disorder
     Route: 065
  3. IBRUTINIB [Suspect]
     Active Substance: IBRUTINIB
     Indication: Lymphoproliferative disorder
     Route: 065
  4. BRENTUXIMAB [Suspect]
     Active Substance: BRENTUXIMAB
     Indication: Lymphoproliferative disorder
     Route: 065
  5. IDELALISIB [Suspect]
     Active Substance: IDELALISIB
     Indication: Lymphoproliferative disorder
     Route: 065
  6. VENETOCLAX [Suspect]
     Active Substance: VENETOCLAX
     Indication: Lymphoproliferative disorder
     Route: 065
  7. ACALABRUTINIB [Suspect]
     Active Substance: ACALABRUTINIB
     Indication: Lymphoproliferative disorder
     Route: 065

REACTIONS (10)
  - Cellulitis [Unknown]
  - Sepsis [Unknown]
  - Device related infection [Unknown]
  - Septic embolus [Unknown]
  - COVID-19 pneumonia [Unknown]
  - Hepatitis B reactivation [Unknown]
  - Cytomegalovirus infection reactivation [Unknown]
  - Herpes simplex [Unknown]
  - Epstein-Barr virus infection reactivation [Unknown]
  - Bacterial infection [Unknown]
